FAERS Safety Report 16388801 (Version 1)
Quarter: 2019Q3

REPORT INFORMATION
  Report Type: Spontaneous
  Country: US (occurrence: US)
  Receive Date: 20190602
  Receipt Date: 20190602
  Transmission Date: 20191004
  Serious: Yes (Other)
  Sender: FDA-Public Use
  Company Number: None

PATIENT
  Age: 55 Year
  Sex: Female
  Weight: 98.1 kg

DRUGS (7)
  1. PROZAC [Concomitant]
     Active Substance: FLUOXETINE HYDROCHLORIDE
  2. NASONEX [Concomitant]
     Active Substance: MOMETASONE FUROATE
  3. VITAMIN B12 [Concomitant]
     Active Substance: CYANOCOBALAMIN
  4. BIOTIN [Concomitant]
     Active Substance: BIOTIN
  5. VITAMIN C [Concomitant]
     Active Substance: ASCORBIC ACID
  6. MYRBETRIQ [Suspect]
     Active Substance: MIRABEGRON
     Indication: HYPERTONIC BLADDER
     Dosage: ?          QUANTITY:1 TABLET(S);?
     Route: 048
  7. ASTELIN [Concomitant]
     Active Substance: AZELASTINE HYDROCHLORIDE

REACTIONS (4)
  - Visual impairment [None]
  - Blood glucose increased [None]
  - Syncope [None]
  - Hypoacusis [None]

NARRATIVE: CASE EVENT DATE: 20190602
